FAERS Safety Report 9840813 (Version 1)
Quarter: 2013Q4

REPORT INFORMATION
  Report Type: Spontaneous
  Country: US (occurrence: None)
  Receive Date: 20131213
  Receipt Date: 20131213
  Transmission Date: 20140711
  Serious: Yes (Other)
  Sender: FDA-Public Use
  Company Number: 2013AP007764

PATIENT
  Age: 68 Year
  Sex: Male

DRUGS (1)
  1. SOTALOL HCL [Suspect]
     Dosage: UNK, UNK

REACTIONS (1)
  - Long QT syndrome [None]
